FAERS Safety Report 7200582-0 (Version None)
Quarter: 2010Q4

REPORT INFORMATION
  Report Type: 
  Country: None (occurrence: None)
  Receive Date: 20101228
  Receipt Date: 20101223
  Transmission Date: 20110411
  Serious: Yes (Hospitalization)
  Sender: FDA-Public Use
  Company Number: FR-PFIZER INC-FR-WYE-G06899110

PATIENT
  Age: 70 Year
  Sex: Male

DRUGS (6)
  1. TAZOCILLINE [Suspect]
     Indication: FEBRILE BONE MARROW APLASIA
     Dosage: UNK
     Route: 042
     Dates: start: 20101022, end: 20101024
  2. BACTRIM [Suspect]
     Indication: ANTIFUNGAL PROPHYLAXIS
     Dosage: UNK
     Route: 048
     Dates: start: 20101011, end: 20101024
  3. GENTAMICIN [Concomitant]
     Dosage: UNK
     Route: 065
     Dates: start: 20101022
  4. VALACYCLOVIR HYDROCHLORIDE (VALTREX) [Concomitant]
     Dosage: UNK
     Route: 065
     Dates: start: 20101011
  5. ZINNAT [Concomitant]
     Indication: PYREXIA
     Dosage: UNK
     Dates: start: 20101011, end: 20101021
  6. CIPROFLOXACIN [Concomitant]
     Indication: PYREXIA
     Dosage: UNK
     Dates: start: 20101011, end: 20101021

REACTIONS (1)
  - DERMATITIS EXFOLIATIVE [None]
